FAERS Safety Report 7498792-0 (Version None)
Quarter: 2011Q2

REPORT INFORMATION
  Report Type: 
  Country: None (occurrence: None)
  Receive Date: 20110524
  Receipt Date: 20110518
  Transmission Date: 20111010
  Serious: Yes (Life-Threatening, Hospitalization)
  Sender: FDA-Public Use
  Company Number: US-PFIZER INC-2011108173

PATIENT
  Age: 75 Year
  Sex: Female

DRUGS (1)
  1. ARGATROBAN [Suspect]
     Indication: WHITE CLOT SYNDROME
     Dosage: 4-6.5 MG/KG
     Route: 042

REACTIONS (1)
  - DRUG INEFFECTIVE [None]
